FAERS Safety Report 5079909-4 (Version None)
Quarter: 2006Q3

REPORT INFORMATION
  Report Type: 
  Country: None (occurrence: None)
  Receive Date: 20060720
  Receipt Date: 20050705
  Transmission Date: 20061208
  Serious: Yes (Hospitalization)
  Sender: FDA-Public Use
  Company Number: 2005100239

PATIENT
  Age: 56 Year
  Sex: Female
  Weight: 83.0083 kg

DRUGS (11)
  1. CELEBREX [Suspect]
     Indication: ILL-DEFINED DISORDER
     Dosage: (200 MG),ORAL
     Route: 048
     Dates: start: 20030612
  2. FLURBIPROFEN [Concomitant]
  3. HYDROXYCHLOROQUINE SULFATE [Concomitant]
  4. ACETAMINOPHEN [Concomitant]
  5. ASPIRIN [Concomitant]
  6. METFORMIN HCL [Concomitant]
  7. COREG [Concomitant]
  8. PLAVIX [Concomitant]
  9. METOPROLOL (METOPROLOL) [Concomitant]
  10. PREVACID [Concomitant]
  11. PLAQUENIL [Concomitant]

REACTIONS (1)
  - ACUTE MYOCARDIAL INFARCTION [None]
